FAERS Safety Report 5497868-7 (Version None)
Quarter: 2007Q4

REPORT INFORMATION
  Report Type: 
  Country: None (occurrence: None)
  Receive Date: 20071018
  Receipt Date: 20061216
  Transmission Date: 20080405
  Serious: Yes (Other)
  Sender: FDA-Public Use
  Company Number: 2006132522

PATIENT
  Age: 3 Year
  Sex: Male

DRUGS (1)
  1. NEURONTIN [Suspect]
     Indication: PARTIAL SEIZURES
     Dosage: 375 MG (125 MG, 3 IN 1 D), ORAL
     Route: 048
     Dates: start: 20060101

REACTIONS (6)
  - AFFECT LABILITY [None]
  - DYSSOMNIA [None]
  - ENCEPHALOPATHY [None]
  - ENURESIS [None]
  - SPEECH DISORDER [None]
  - WEIGHT INCREASED [None]
